FAERS Safety Report 8543344 (Version 5)
Quarter: 2012Q4

REPORT INFORMATION
  Report Type: 
  Country: GB (occurrence: GB)
  Receive Date: 20120603
  Receipt Date: 20121010
  Transmission Date: 20130627
  Serious: Yes (Hospitalization, Other)
  Sender: FDA-Public Use
  Company Number: GB-ALLERGAN-1206032US

PATIENT
  Age: 47 Year
  Sex: Female

DRUGS (1)
  1. BOTOX� [Suspect]
     Indication: CHRONIC MIGRAINE
     Dosage: UNK
     Route: 030

REACTIONS (3)
  - Joint dislocation [Recovered/Resolved with Sequelae]
  - Pain in jaw [Recovered/Resolved with Sequelae]
  - Temporomandibular joint syndrome [Recovered/Resolved with Sequelae]
